FAERS Safety Report 10071387 (Version 3)
Quarter: 2014Q3

REPORT INFORMATION
  Report Type: Spontaneous
  Country: JP (occurrence: JP)
  Receive Date: 20140410
  Receipt Date: 20140829
  Transmission Date: 20150326
  Serious: Yes (Life-Threatening, Other)
  Sender: FDA-Public Use
  Company Number: JP-B.I. PHARMACEUTICALS,INC./RIDGEFIELD-2014-BI-16559NB

PATIENT
  Age: 75 Year
  Sex: Male

DRUGS (5)
  1. CIBENOL [Concomitant]
     Active Substance: CIFENLINE
     Dosage: 200 MG
     Route: 048
     Dates: start: 20140331, end: 20140404
  2. MAINTATE [Concomitant]
     Active Substance: BISOPROLOL FUMARATE
     Dosage: 5 MG
     Route: 048
     Dates: start: 20140116, end: 20140404
  3. PRAZAXA [Suspect]
     Active Substance: DABIGATRAN ETEXILATE MESYLATE
     Indication: PRODUCT USED FOR UNKNOWN INDICATION
     Dosage: 220 MG
     Route: 048
     Dates: start: 20140116, end: 20140404
  4. FEBURIC [Concomitant]
     Active Substance: FEBUXOSTAT
     Dosage: 10 MG
     Route: 048
     Dates: start: 20140116, end: 20140404
  5. DIART [Concomitant]
     Active Substance: AZOSEMIDE
     Dosage: 30 MG
     Route: 048
     Dates: start: 20140116, end: 20140404

REACTIONS (5)
  - Disseminated intravascular coagulation [Unknown]
  - Multi-organ failure [Not Recovered/Not Resolved]
  - Ischaemic hepatitis [Unknown]
  - Renal failure acute [Unknown]
  - Cardio-respiratory arrest [Not Recovered/Not Resolved]

NARRATIVE: CASE EVENT DATE: 20140404
